FAERS Safety Report 7782749-6 (Version None)
Quarter: 2011Q3

REPORT INFORMATION
  Report Type: 
  Country: None (occurrence: None)
  Receive Date: 20110927
  Receipt Date: 20110927
  Transmission Date: 20111222
  Serious: Yes (Hospitalization)
  Sender: FDA-Public Use
  Company Number: None

PATIENT
  Sex: Female
  Weight: 54 kg

DRUGS (3)
  1. TAXOL [Suspect]
     Dosage: 1120 MG
  2. BEVACIZUMAB (RHUMAB VEGF) [Suspect]
     Dosage: 5760 MG
  3. CARBOPLATIN [Suspect]
     Dosage: 1512 MG

REACTIONS (2)
  - UNEVALUABLE EVENT [None]
  - ABDOMINAL PAIN [None]
